FAERS Safety Report 15782415 (Version 2)
Quarter: 2020Q3

REPORT INFORMATION
  Report Type: Spontaneous
  Country: RU (occurrence: RU)
  Receive Date: 20190102
  Receipt Date: 20200904
  Transmission Date: 20201102
  Serious: Yes (Hospitalization)
  Sender: FDA-Public Use
  Company Number: RU-SA-2018SA394430

PATIENT

DRUGS (2)
  1. TOUJEO [Suspect]
     Active Substance: INSULIN GLARGINE
     Indication: TYPE 1 DIABETES MELLITUS
     Dosage: 34 IU, QD
     Route: 058
     Dates: start: 20170317, end: 20180301
  2. TOUJEO [Suspect]
     Active Substance: INSULIN GLARGINE
     Indication: GLYCOSYLATED HAEMOGLOBIN

REACTIONS (2)
  - Asphyxia [Recovering/Resolving]
  - Hyperglycaemia [Recovering/Resolving]

NARRATIVE: CASE EVENT DATE: 20171001
